FAERS Safety Report 6450023-6 (Version None)
Quarter: 2009Q4

REPORT INFORMATION
  Report Type: 
  Country: None (occurrence: None)
  Receive Date: 20091123
  Receipt Date: 20091113
  Transmission Date: 20100525
  Serious: Yes (Hospitalization)
  Sender: FDA-Public Use
  Company Number: FR-JNJFOC-20091104113

PATIENT
  Age: 82 Year
  Sex: Female

DRUGS (2)
  1. TAVANIC [Suspect]
     Indication: OSTEOMYELITIS
     Route: 048
     Dates: start: 20090902, end: 20090923
  2. RIFAMPICIN [Suspect]
     Indication: INFECTION
     Route: 048
     Dates: start: 20090902, end: 20090928

REACTIONS (1)
  - TOXIC SKIN ERUPTION [None]
